FAERS Safety Report 13709720 (Version 2)
Quarter: 2017Q3

REPORT INFORMATION
  Report Type: Spontaneous
  Country: AR (occurrence: AR)
  Receive Date: 20170703
  Receipt Date: 20170721
  Transmission Date: 20171127
  Serious: Yes (Death, Hospitalization, Other)
  Sender: FDA-Public Use
  Company Number: AR-SUN PHARMACEUTICAL INDUSTRIES LTD-2017RR-143973

PATIENT
  Age: 77 Year
  Sex: Male

DRUGS (9)
  1. LEUPROLIDE [Suspect]
     Active Substance: LEUPROLIDE
     Indication: METASTASES TO LUNG
     Route: 065
  2. LEUPROLIDE [Suspect]
     Active Substance: LEUPROLIDE
     Indication: METASTASES TO BONE
  3. BICALUTAMIDE. [Suspect]
     Active Substance: BICALUTAMIDE
     Indication: METASTASES TO THE MEDIASTINUM
  4. LEUPROLIDE [Suspect]
     Active Substance: LEUPROLIDE
     Indication: METASTASES TO THE MEDIASTINUM
  5. BICALUTAMIDE. [Suspect]
     Active Substance: BICALUTAMIDE
     Indication: METASTASES TO LUNG
     Route: 065
  6. BICALUTAMIDE. [Suspect]
     Active Substance: BICALUTAMIDE
     Indication: PROSTATE CANCER
  7. LEUPROLIDE [Suspect]
     Active Substance: LEUPROLIDE
     Indication: PROSTATE CANCER
  8. BICALUTAMIDE. [Suspect]
     Active Substance: BICALUTAMIDE
     Indication: METASTASES TO BONE
  9. AMIODARONE [Concomitant]
     Active Substance: AMIODARONE
     Indication: ATRIAL FIBRILLATION
     Dosage: 300 MG
     Route: 042

REACTIONS (2)
  - Interstitial lung disease [Fatal]
  - Acute pulmonary oedema [Fatal]
